FAERS Safety Report 8021011-3 (Version None)
Quarter: 2011Q4

REPORT INFORMATION
  Report Type: 
  Country: None (occurrence: None)
  Receive Date: 20111228
  Receipt Date: 20111216
  Transmission Date: 20120403
  Serious: Yes (Other)
  Sender: FDA-Public Use
  Company Number: 2011MA017954

PATIENT
  Age: 35 Year
  Sex: Female

DRUGS (6)
  1. TOPIRAMATE [Suspect]
     Indication: CONVULSION
  2. KEPPRA [Suspect]
     Indication: CONVULSION
     Dosage: 1500 MG;BID;
  3. CLOBAZAM (CLOBAZAM) [Suspect]
     Indication: CONVULSION
  4. LACOSAMIDE [Suspect]
     Indication: CONVULSION
     Dosage: 50 MG;BID;
  5. LAMOTRIGINE (PREV.) [Concomitant]
  6. CARBAMAZEPINE [Suspect]
     Indication: CONVULSION
     Dosage: 200 MG;BID;

REACTIONS (14)
  - SELF ESTEEM DECREASED [None]
  - SLOW SPEECH [None]
  - URINARY INCONTINENCE [None]
  - ANXIETY [None]
  - STEVENS-JOHNSON SYNDROME [None]
  - DIPLOPIA [None]
  - TEARFULNESS [None]
  - FAMILY STRESS [None]
  - FATIGUE [None]
  - CONVULSION [None]
  - AURA [None]
  - MEMORY IMPAIRMENT [None]
  - IMPAIRED WORK ABILITY [None]
  - DRUG HYPERSENSITIVITY [None]
